FAERS Safety Report 25517454 (Version 1)
Quarter: 2025Q3

REPORT INFORMATION
  Report Type: Spontaneous
  Country: US (occurrence: US)
  Receive Date: 20250704
  Receipt Date: 20250704
  Transmission Date: 20251021
  Serious: No
  Sender: ELI LILLY AND COMPANY
  Company Number: US-ELI_LILLY_AND_COMPANY-US202507002947

PATIENT
  Age: 71 Year
  Sex: Female

DRUGS (1)
  1. ZEPBOUND [Suspect]
     Active Substance: TIRZEPATIDE
     Indication: Product used for unknown indication
     Dosage: 2.5 MG, WEEKLY (1/W)
     Route: 058
     Dates: start: 202506

REACTIONS (7)
  - Influenza [Unknown]
  - Feeling abnormal [Unknown]
  - Insomnia [Unknown]
  - Muscle spasms [Unknown]
  - Arthralgia [Unknown]
  - Lethargy [Unknown]
  - Listless [Unknown]
